FAERS Safety Report 9098637 (Version 1)
Quarter: 2013Q1

REPORT INFORMATION
  Report Type: Spontaneous
  Country: US (occurrence: US)
  Receive Date: 20130213
  Receipt Date: 20130213
  Transmission Date: 20140127
  Serious: Yes (Other)
  Sender: FDA-Public Use
  Company Number: US-PFIZER INC-2013053351

PATIENT
  Sex: Female

DRUGS (3)
  1. ESTRING [Suspect]
     Indication: VULVOVAGINAL DRYNESS
     Dosage: 2 MG, UNK
     Route: 067
     Dates: start: 20121129
  2. ESTRING [Suspect]
     Indication: ATROPHIC VULVOVAGINITIS
  3. ESTRING [Suspect]
     Indication: DYSPAREUNIA

REACTIONS (2)
  - Hip fracture [Unknown]
  - Sexual dysfunction [Unknown]
